FAERS Safety Report 7459765-7 (Version None)
Quarter: 2011Q2

REPORT INFORMATION
  Report Type: 
  Country: None (occurrence: None)
  Receive Date: 20110505
  Receipt Date: 20110428
  Transmission Date: 20111010
  Serious: Yes (Life-Threatening, Other)
  Sender: FDA-Public Use
  Company Number: DE-PFIZER INC-2011095053

PATIENT
  Age: 76 Year
  Sex: Female

DRUGS (4)
  1. MARCUMAR [Concomitant]
     Indication: ATRIAL FIBRILLATION
     Dosage: UNK
     Dates: start: 20101001
  2. AMIODARONE HCL [Suspect]
     Indication: ATRIAL FLUTTER
  3. MARCUMAR [Concomitant]
     Indication: ATRIAL FLUTTER
  4. AMIODARONE HCL [Suspect]
     Indication: ATRIAL FIBRILLATION
     Dosage: UNKNOWN
     Route: 048
     Dates: start: 20101001

REACTIONS (4)
  - PNEUMONIA PRIMARY ATYPICAL [None]
  - LISTLESS [None]
  - WEIGHT DECREASED [None]
  - RENAL FAILURE [None]
